FAERS Safety Report 19257554 (Version 1)
Quarter: 2021Q2

REPORT INFORMATION
  Report Type: Spontaneous
  Country: US (occurrence: US)
  Receive Date: 20210513
  Receipt Date: 20210513
  Transmission Date: 20210717
  Serious: No
  Sender: FDA-Public Use
  Company Number: None

PATIENT
  Age: 56 Year
  Sex: Female
  Weight: 68.49 kg

DRUGS (9)
  1. GABAPENTIN. [Concomitant]
     Active Substance: GABAPENTIN
  2. FLONASE [Concomitant]
     Active Substance: FLUTICASONE PROPIONATE
  3. TYLENOL [Concomitant]
     Active Substance: ACETAMINOPHEN
  4. SYMBICORT [Concomitant]
     Active Substance: BUDESONIDE\FORMOTEROL FUMARATE DIHYDRATE
  5. PROVENTIL [Concomitant]
     Active Substance: ALBUTEROL
  6. XELODA [Suspect]
     Active Substance: CAPECITABINE
     Indication: GASTRIC CANCER
     Dosage: ?          OTHER FREQUENCY:BID ON MON?FRI;?
     Route: 048
     Dates: start: 20210304
  7. SINGULAIR [Concomitant]
     Active Substance: MONTELUKAST SODIUM
  8. EFFEXOR [Concomitant]
     Active Substance: VENLAFAXINE HYDROCHLORIDE
  9. ASPIRIN. [Concomitant]
     Active Substance: ASPIRIN

REACTIONS (1)
  - Nausea [None]

NARRATIVE: CASE EVENT DATE: 20210513
